FAERS Safety Report 21009251 (Version 2)
Quarter: 2022Q3

REPORT INFORMATION
  Report Type: Report from Study
  Country: JP (occurrence: JP)
  Receive Date: 20220627
  Receipt Date: 20220713
  Transmission Date: 20221026
  Serious: Yes (Other)
  Sender: FDA-Public Use
  Company Number: JP-BAYER-2022A087062

PATIENT
  Age: 48 Year
  Sex: Female

DRUGS (2)
  1. VITRAKVI [Suspect]
     Active Substance: LAROTRECTINIB
     Indication: Neoplasm malignant
     Dosage: DAILY DOSE 200 MG
  2. VITRAKVI [Suspect]
     Active Substance: LAROTRECTINIB
     Indication: Sarcoma

REACTIONS (3)
  - Renal impairment [None]
  - Myelosuppression [None]
  - Hepatic function abnormal [None]
